FAERS Safety Report 24256763 (Version 2)
Quarter: 2024Q4

REPORT INFORMATION
  Report Type: Spontaneous
  Country: US (occurrence: US)
  Receive Date: 20240828
  Receipt Date: 20241008
  Transmission Date: 20250115
  Serious: No
  Sender: ALEXION PHARMACEUTICALS
  Company Number: 2024A188599

PATIENT

DRUGS (4)
  1. SAPHNELO [Suspect]
     Active Substance: ANIFROLUMAB-FNIA
  2. SAPHNELO [Suspect]
     Active Substance: ANIFROLUMAB-FNIA
  3. SAPHNELO [Suspect]
     Active Substance: ANIFROLUMAB-FNIA
  4. SAPHNELO [Suspect]
     Active Substance: ANIFROLUMAB-FNIA

REACTIONS (3)
  - Dizziness [Unknown]
  - Palpitations [Unknown]
  - Middle insomnia [Unknown]
